FAERS Safety Report 5529061-3 (Version None)
Quarter: 2007Q4

REPORT INFORMATION
  Report Type: 
  Country: None (occurrence: None)
  Receive Date: 20071129
  Receipt Date: 20061017
  Transmission Date: 20080405
  Serious: No
  Sender: FDA-Public Use
  Company Number: A0623922A

PATIENT
  Age: 58 Year
  Sex: Female

DRUGS (2)
  1. WELLBUTRIN SR [Suspect]
     Indication: DEPRESSION
     Dosage: 100MG PER DAY
     Route: 048
     Dates: start: 20060901
  2. ATIVAN [Concomitant]

REACTIONS (2)
  - FEELING ABNORMAL [None]
  - INSOMNIA [None]
